FAERS Safety Report 18566264 (Version 1)
Quarter: 2020Q4

REPORT INFORMATION
  Report Type: Report from Study
  Country: BR (occurrence: BR)
  Receive Date: 20201201
  Receipt Date: 20201201
  Transmission Date: 20210114
  Serious: Yes (Other)
  Sender: FDA-Public Use
  Company Number: NVSC2020BR317549

PATIENT
  Sex: Female

DRUGS (1)
  1. GALVUS MET [Suspect]
     Active Substance: METFORMIN HYDROCHLORIDE\VILDAGLIPTIN
     Indication: PRODUCT USED FOR UNKNOWN INDICATION
     Dosage: UNK UNK, BID (50 + 1000 MG) 1 TABLET AFTER BREAKFAST AND DINNER
     Route: 065

REACTIONS (4)
  - Diabetes mellitus [Unknown]
  - Burning sensation [Unknown]
  - Malaise [Unknown]
  - Dyspepsia [Not Recovered/Not Resolved]
